FAERS Safety Report 9331531 (Version 1)
Quarter: 2013Q2

REPORT INFORMATION
  Report Type: Spontaneous
  Country: US (occurrence: US)
  Receive Date: 20130605
  Receipt Date: 20130605
  Transmission Date: 20140414
  Serious: Yes (Other)
  Sender: FDA-Public Use
  Company Number: US-PFIZER INC-2013169400

PATIENT
  Sex: Male

DRUGS (1)
  1. CHANTIX [Suspect]
     Indication: SMOKING CESSATION THERAPY
     Dosage: UNK
     Dates: start: 2010

REACTIONS (8)
  - Cerebrovascular accident [Unknown]
  - Dizziness [Unknown]
  - Confusional state [Unknown]
  - Acrophobia [Unknown]
  - Fear [Unknown]
  - Abnormal dreams [Unknown]
  - Pollakiuria [Unknown]
  - Rash [Unknown]
